FAERS Safety Report 21872375 (Version 4)
Quarter: 2023Q4

REPORT INFORMATION
  Report Type: Spontaneous
  Country: US (occurrence: US)
  Receive Date: 20230117
  Receipt Date: 20231004
  Transmission Date: 20240110
  Serious: Yes (Hospitalization)
  Sender: FDA-Public Use
  Company Number: US-ELI_LILLY_AND_COMPANY-US202301002644

PATIENT
  Sex: Female

DRUGS (4)
  1. FORTEO [Suspect]
     Active Substance: TERIPARATIDE
     Dosage: 20 UG, UNKNOWN
     Route: 058
     Dates: start: 202301
  2. FORTEO [Suspect]
     Active Substance: TERIPARATIDE
     Dosage: UNK UNK, UNKNOWN
     Route: 058
  3. EVENITY [Concomitant]
     Active Substance: ROMOSOZUMAB-AQQG
     Indication: Osteoporosis
     Dosage: UNK
  4. RECLAST [Concomitant]
     Active Substance: ZOLEDRONIC ACID
     Indication: Osteoporosis
     Dosage: UNK

REACTIONS (7)
  - Spinal fracture [Recovered/Resolved]
  - Spinal disorder [Not Recovered/Not Resolved]
  - Bone loss [Not Recovered/Not Resolved]
  - Meniere^s disease [Not Recovered/Not Resolved]
  - Balance disorder [Not Recovered/Not Resolved]
  - Contusion [Recovering/Resolving]
  - Off label use [Unknown]
